FAERS Safety Report 17150011 (Version 5)
Quarter: 2020Q4

REPORT INFORMATION
  Report Type: Report from Study
  Country: US (occurrence: US)
  Receive Date: 20191213
  Receipt Date: 20201111
  Transmission Date: 20210113
  Serious: Yes (Hospitalization, Other)
  Sender: FDA-Public Use
  Company Number: US-ROCHE-2152578

PATIENT
  Age: 45 Year
  Sex: Female
  Weight: 76.8 kg

DRUGS (82)
  1. ATEZOLIZUMAB. [Suspect]
     Active Substance: ATEZOLIZUMAB
     Route: 042
     Dates: start: 20190215
  2. ATEZOLIZUMAB. [Suspect]
     Active Substance: ATEZOLIZUMAB
     Route: 042
     Dates: start: 20191204
  3. OXYCODONE [Concomitant]
     Active Substance: OXYCODONE
  4. ALBUTEROL. [Concomitant]
     Active Substance: ALBUTEROL
     Indication: WHEEZING
  5. MOMETASONE [Concomitant]
     Active Substance: MOMETASONE
  6. SUNITINIB [Concomitant]
     Active Substance: SUNITINIB
  7. CYTOXAN [Concomitant]
     Active Substance: CYCLOPHOSPHAMIDE
     Dates: start: 201501, end: 201708
  8. NAVELBINE [Concomitant]
     Active Substance: VINORELBINE TARTRATE
     Dates: start: 201501, end: 201708
  9. ATEZOLIZUMAB. [Suspect]
     Active Substance: ATEZOLIZUMAB
     Route: 042
     Dates: start: 20180305
  10. ADVIL [Concomitant]
     Active Substance: IBUPROFEN
  11. CYCLOBENZAPRINE. [Concomitant]
     Active Substance: CYCLOBENZAPRINE
  12. DOXEPIN [Concomitant]
     Active Substance: DOXEPIN
  13. LORAZEPAM. [Concomitant]
     Active Substance: LORAZEPAM
  14. PREGABALIN. [Concomitant]
     Active Substance: PREGABALIN
  15. RANITIDINE. [Concomitant]
     Active Substance: RANITIDINE
  16. SENNOSIDE [Concomitant]
     Active Substance: SENNOSIDES
  17. ZOMETA [Concomitant]
     Active Substance: ZOLEDRONIC ACID
     Dates: start: 201501, end: 201508
  18. ATEZOLIZUMAB. [Suspect]
     Active Substance: ATEZOLIZUMAB
     Route: 042
     Dates: start: 20180209
  19. ATEZOLIZUMAB. [Suspect]
     Active Substance: ATEZOLIZUMAB
     Route: 042
     Dates: start: 20180807
  20. ATEZOLIZUMAB. [Suspect]
     Active Substance: ATEZOLIZUMAB
     Route: 042
     Dates: start: 20180104
  21. CHOLECALCIFEROL [Concomitant]
     Active Substance: CHOLECALCIFEROL
  22. DULOXETINE. [Concomitant]
     Active Substance: DULOXETINE
  23. FLUTICASONE. [Concomitant]
     Active Substance: FLUTICASONE
  24. GEMFIBROZIL. [Concomitant]
     Active Substance: GEMFIBROZIL
  25. TORSEMIDE. [Concomitant]
     Active Substance: TORSEMIDE
  26. ATEZOLIZUMAB. [Suspect]
     Active Substance: ATEZOLIZUMAB
     Route: 042
     Dates: start: 20180418
  27. ATEZOLIZUMAB. [Suspect]
     Active Substance: ATEZOLIZUMAB
     Route: 042
     Dates: start: 20181030
  28. ATEZOLIZUMAB. [Suspect]
     Active Substance: ATEZOLIZUMAB
     Route: 042
     Dates: start: 20190329
  29. ATENOLOL. [Concomitant]
     Active Substance: ATENOLOL
  30. GLUCOSAMINE [Concomitant]
     Active Substance: GLUCOSAMINE
  31. ALPRAZOLAM. [Concomitant]
     Active Substance: ALPRAZOLAM
  32. FORMOTEROL [Concomitant]
     Active Substance: FORMOTEROL
  33. ATEZOLIZUMAB. [Suspect]
     Active Substance: ATEZOLIZUMAB
     Indication: ALVEOLAR SOFT PART SARCOMA
     Dosage: PATIENTS RECEIVE ATEZOLIZUMAB IV OVER 60 MINUTES ON DAY 1. COURSES REPEAT EVERY 21 DAYS IN THE ABSEN
     Route: 042
     Dates: start: 20171211
  34. ATEZOLIZUMAB. [Suspect]
     Active Substance: ATEZOLIZUMAB
     Route: 042
     Dates: start: 20180103
  35. ATEZOLIZUMAB. [Suspect]
     Active Substance: ATEZOLIZUMAB
     Route: 042
     Dates: start: 20180124
  36. ATEZOLIZUMAB. [Suspect]
     Active Substance: ATEZOLIZUMAB
     Route: 042
     Dates: start: 20180328
  37. ATEZOLIZUMAB. [Suspect]
     Active Substance: ATEZOLIZUMAB
     Route: 042
     Dates: start: 20180529
  38. ATEZOLIZUMAB. [Suspect]
     Active Substance: ATEZOLIZUMAB
     Route: 042
     Dates: start: 20181129
  39. ATEZOLIZUMAB. [Suspect]
     Active Substance: ATEZOLIZUMAB
     Route: 042
     Dates: start: 20190308
  40. ATEZOLIZUMAB. [Suspect]
     Active Substance: ATEZOLIZUMAB
     Route: 042
     Dates: start: 20200416
  41. AMBIEN [Concomitant]
     Active Substance: ZOLPIDEM TARTRATE
  42. PROAIR HFA [Concomitant]
     Active Substance: ALBUTEROL SULFATE
  43. FEXOFENADINE [Concomitant]
     Active Substance: FEXOFENADINE HYDROCHLORIDE
  44. IPRATROPIUM [Concomitant]
     Active Substance: IPRATROPIUM
  45. VINCRISTINE [Concomitant]
     Active Substance: VINCRISTINE
     Dates: start: 201501, end: 201708
  46. ADRIAMYCIN [Concomitant]
     Active Substance: DOXORUBICIN HYDROCHLORIDE
     Dates: start: 201501, end: 201708
  47. GEMCITABINE. [Concomitant]
     Active Substance: GEMCITABINE
     Dates: start: 201501, end: 201508
  48. ATEZOLIZUMAB. [Suspect]
     Active Substance: ATEZOLIZUMAB
     Route: 042
     Dates: start: 20180510
  49. ATEZOLIZUMAB. [Suspect]
     Active Substance: ATEZOLIZUMAB
     Route: 042
     Dates: start: 20181009
  50. ATEZOLIZUMAB. [Suspect]
     Active Substance: ATEZOLIZUMAB
     Route: 042
     Dates: start: 20190912
  51. ATEZOLIZUMAB. [Suspect]
     Active Substance: ATEZOLIZUMAB
     Route: 042
     Dates: start: 20200305
  52. AMITIZA [Concomitant]
     Active Substance: LUBIPROSTONE
  53. ACETAMINOPHEN. [Concomitant]
     Active Substance: ACETAMINOPHEN
  54. LUBIPROSTONE [Concomitant]
     Active Substance: LUBIPROSTONE
  55. AZELASTINE. [Concomitant]
     Active Substance: AZELASTINE HYDROCHLORIDE
  56. BETAMETHASONE. [Concomitant]
     Active Substance: BETAMETHASONE
  57. ESZOPICLONE. [Concomitant]
     Active Substance: ESZOPICLONE
  58. HYDROCORTISONE. [Concomitant]
     Active Substance: HYDROCORTISONE
  59. LIDOCAINE. [Concomitant]
     Active Substance: LIDOCAINE
  60. MONTELUKAST [Concomitant]
     Active Substance: MONTELUKAST SODIUM
  61. ATEZOLIZUMAB. [Suspect]
     Active Substance: ATEZOLIZUMAB
     Route: 042
     Dates: start: 20180625
  62. ATEZOLIZUMAB. [Suspect]
     Active Substance: ATEZOLIZUMAB
     Route: 042
     Dates: start: 20180828
  63. ATEZOLIZUMAB. [Suspect]
     Active Substance: ATEZOLIZUMAB
     Route: 042
     Dates: start: 20180124
  64. LYRICA [Concomitant]
     Active Substance: PREGABALIN
  65. OXYBUTYNIN. [Concomitant]
     Active Substance: OXYBUTYNIN CHLORIDE
  66. OXYGEN. [Concomitant]
     Active Substance: OXYGEN
  67. BUDESONIDE;FORMOTEROL [Concomitant]
     Active Substance: BUDESONIDE\FORMOTEROL
  68. TRAZODONE [Concomitant]
     Active Substance: TRAZODONE HYDROCHLORIDE
  69. PROPOFOL. [Concomitant]
     Active Substance: PROPOFOL
  70. ATEZOLIZUMAB. [Suspect]
     Active Substance: ATEZOLIZUMAB
     Route: 042
     Dates: start: 20180717
  71. ATEZOLIZUMAB. [Suspect]
     Active Substance: ATEZOLIZUMAB
     Route: 042
     Dates: start: 20180918
  72. ATEZOLIZUMAB. [Suspect]
     Active Substance: ATEZOLIZUMAB
     Route: 042
     Dates: start: 20190215
  73. ATEZOLIZUMAB. [Suspect]
     Active Substance: ATEZOLIZUMAB
     Route: 042
     Dates: start: 20190308
  74. ATEZOLIZUMAB. [Suspect]
     Active Substance: ATEZOLIZUMAB
     Route: 042
     Dates: start: 20190530
  75. ATEZOLIZUMAB. [Suspect]
     Active Substance: ATEZOLIZUMAB
     Route: 042
     Dates: start: 20200416
  76. CYMBALTA [Concomitant]
     Active Substance: DULOXETINE HYDROCHLORIDE
  77. METOPROLOL. [Concomitant]
     Active Substance: METOPROLOL
  78. OLOPATADINE. [Concomitant]
     Active Substance: OLOPATADINE
  79. PILOCARPINE. [Concomitant]
     Active Substance: PILOCARPINE
  80. CISPLATIN. [Concomitant]
     Active Substance: CISPLATIN
     Dates: start: 201501, end: 201708
  81. TEMOZOLOMIDE. [Concomitant]
     Active Substance: TEMOZOLOMIDE
     Dates: start: 201501, end: 201708
  82. PREDNISONE. [Concomitant]
     Active Substance: PREDNISONE
     Route: 048

REACTIONS (14)
  - Activated partial thromboplastin time prolonged [Unknown]
  - Cerebrovascular accident [Recovered/Resolved]
  - Infection [Unknown]
  - Pneumonia [Unknown]
  - Mental status changes [Unknown]
  - Urinary tract infection [Unknown]
  - Anaemia [Unknown]
  - Anxiety [Unknown]
  - Cerebrovascular accident [Recovered/Resolved]
  - Sepsis [Recovered/Resolved]
  - Hypoxia [Unknown]
  - Hypertension [Unknown]
  - Somnolence [Unknown]
  - Pneumonitis [Unknown]

NARRATIVE: CASE EVENT DATE: 20171225
